FAERS Safety Report 8858816 (Version 1)
Quarter: 2012Q4

REPORT INFORMATION
  Report Type: Spontaneous
  Country: US (occurrence: None)
  Receive Date: 20121022
  Receipt Date: 20121022
  Transmission Date: 20130627
  Serious: Yes (Other)
  Sender: FDA-Public Use
  Company Number: None

PATIENT
  Age: 42 Year
  Sex: Female
  Weight: 165.56 kg

DRUGS (2)
  1. SENNA [Suspect]
     Indication: STOOLS HARD
     Route: 048
     Dates: start: 20120615, end: 20120618
  2. UNSPECIFIED INGREDIENT [Suspect]
     Dosage: 2 cups a days 4 days
     Route: 048
     Dates: start: 20121002, end: 20121014

REACTIONS (3)
  - Malaise [None]
  - Oral discomfort [None]
  - Gastrooesophageal reflux disease [None]
